FAERS Safety Report 17704849 (Version 1)
Quarter: 2020Q2

REPORT INFORMATION
  Report Type: Spontaneous
  Country: US (occurrence: US)
  Receive Date: 20200420
  Receipt Date: 20200420
  Transmission Date: 20200714
  Serious: Yes (Other)
  Sender: FDA-Public Use
  Company Number: US-AKORN PHARMACEUTICALS-2020AKN00500

PATIENT
  Age: 17 Year
  Sex: Female

DRUGS (3)
  1. MYORISAN [Suspect]
     Active Substance: ISOTRETINOIN
     Dosage: AVERAGE DAILY DOSE: 70 MG
     Dates: start: 20171101, end: 20180624
  2. BIRTH CONTROL PILLS (UNSPECFIED) [Concomitant]
  3. MYORISAN [Suspect]
     Active Substance: ISOTRETINOIN
     Dosage: AVERAGE DAILY DOSE: 70 MG
     Dates: start: 20171202, end: 20180624

REACTIONS (3)
  - Treatment noncompliance [Recovered/Resolved]
  - Abortion induced [Recovered/Resolved]
  - Drug exposure before pregnancy [Recovered/Resolved]

NARRATIVE: CASE EVENT DATE: 2020
